FAERS Safety Report 8045342-6 (Version None)
Quarter: 2012Q1

REPORT INFORMATION
  Report Type: 
  Country: None (occurrence: None)
  Receive Date: 20120110
  Receipt Date: 20111228
  Transmission Date: 20120608
  Serious: Yes (Hospitalization, Other)
  Sender: FDA-Public Use
  Company Number: DEP_00531_2011

PATIENT
  Age: 56 Year
  Sex: Female

DRUGS (3)
  1. GRALISE [Suspect]
     Indication: NEURALGIA
     Dosage: (1500 MG QD, ONE 300 MG TABLET, TWO 600 MG TABLETS AT BEDTIME ORAL)
     Route: 048
     Dates: start: 20111101, end: 20110101
  2. GRALISE [Suspect]
     Indication: FIBROMYALGIA
     Dosage: (1500 MG QD, ONE 300 MG TABLET, TWO 600 MG TABLETS AT BEDTIME ORAL)
     Route: 048
     Dates: start: 20111101, end: 20110101
  3. GRALISE [Suspect]

REACTIONS (3)
  - DYSKINESIA [None]
  - DIARRHOEA [None]
  - DEHYDRATION [None]
